FAERS Safety Report 8256026-3 (Version None)
Quarter: 2012Q2

REPORT INFORMATION
  Report Type: 
  Country: None (occurrence: None)
  Receive Date: 20120403
  Receipt Date: 20120326
  Transmission Date: 20120825
  Serious: Yes (Hospitalization, Other)
  Sender: FDA-Public Use
  Company Number: US-ROCHE-1052434

PATIENT

DRUGS (3)
  1. DOCETAXEL [Suspect]
     Indication: ADENOCARCINOMA PANCREAS
     Dosage: ON DAY 4 AND 11
     Route: 042
  2. XELODA [Suspect]
     Indication: ADENOCARCINOMA PANCREAS
     Route: 048
  3. GEMCITABINE HYDROCHLORIDE [Suspect]
     Indication: ADENOCARCINOMA PANCREAS
     Route: 042

REACTIONS (8)
  - FEBRILE NEUTROPENIA [None]
  - THROMBOCYTOPENIA [None]
  - INFECTION [None]
  - PULMONARY EMBOLISM [None]
  - ANAEMIA [None]
  - LEUKOPENIA [None]
  - ALANINE AMINOTRANSFERASE INCREASED [None]
  - BLOOD LACTATE DEHYDROGENASE INCREASED [None]
